FAERS Safety Report 5387198-6 (Version None)
Quarter: 2007Q3

REPORT INFORMATION
  Report Type: 
  Country: None (occurrence: None)
  Receive Date: 20070711
  Receipt Date: 20070628
  Transmission Date: 20080115
  Serious: Yes (Hospitalization)
  Sender: FDA-Public Use
  Company Number: 2007325578

PATIENT
  Age: 2 Year
  Sex: Male
  Weight: 9.5 kg

DRUGS (1)
  1. BENADRYL [Suspect]
     Dosage: 6 FASTMELTS ONCE (1 IN 1 D), ORAL
     Route: 048
     Dates: start: 20070628, end: 20070628

REACTIONS (4)
  - ACCIDENTAL DRUG INTAKE BY CHILD [None]
  - HEART RATE INCREASED [None]
  - MIOSIS [None]
  - TONGUE DISORDER [None]
